FAERS Safety Report 16688453 (Version 4)
Quarter: 2020Q1

REPORT INFORMATION
  Report Type: Spontaneous
  Country: JP (occurrence: JP)
  Receive Date: 20190809
  Receipt Date: 20200228
  Transmission Date: 20200409
  Serious: Yes (Death, Other)
  Sender: FDA-Public Use
  Company Number: JP-ROCHE-2373438

PATIENT
  Age: 51 Year
  Sex: Female

DRUGS (2)
  1. ERIBULIN MESILATE [Concomitant]
     Active Substance: ERIBULIN
     Indication: BREAST CANCER
     Route: 041
  2. HERCEPTIN [Suspect]
     Active Substance: TRASTUZUMAB
     Indication: BREAST CANCER
     Route: 041

REACTIONS (5)
  - Metastases to liver [Unknown]
  - Pseudocirrhosis [Unknown]
  - Neoplasm recurrence [Unknown]
  - Febrile neutropenia [Unknown]
  - Breast cancer [Fatal]
